FAERS Safety Report 6468650-9 (Version None)
Quarter: 2009Q4

REPORT INFORMATION
  Report Type: 
  Country: None (occurrence: None)
  Receive Date: 20091203
  Receipt Date: 20091201
  Transmission Date: 20100525
  Serious: No
  Sender: FDA-Public Use
  Company Number: BR-ROCHE-650678

PATIENT
  Sex: Female
  Weight: 26.6 kg

DRUGS (7)
  1. TAMIFLU [Suspect]
     Dosage: STRENGTH REPORTED: 12MG/ML; ROUTE: ORAL
     Route: 050
     Dates: start: 20090807, end: 20090809
  2. TAMIFLU [Suspect]
     Dosage: STRENGTH REPORTED: 12 MG/ML; ROUTE: NASOGASTRIC TUBE
     Route: 050
     Dates: start: 20090810
  3. CARBAMAZEPINE [Concomitant]
     Indication: CONVULSION
  4. BACLOFEN [Concomitant]
  5. FENOBARBITAL [Concomitant]
     Indication: CONVULSION
  6. ZINNAT [Concomitant]
     Indication: ANTIBIOTIC THERAPY
  7. CIPROFLOXACIN [Concomitant]
     Indication: ANTIBIOTIC THERAPY

REACTIONS (2)
  - DRUG ADMINISTRATION ERROR [None]
  - NO ADVERSE EVENT [None]
